FAERS Safety Report 21479745 (Version 2)
Quarter: 2022Q4

REPORT INFORMATION
  Report Type: Spontaneous
  Country: CN (occurrence: CN)
  Receive Date: 20221019
  Receipt Date: 20221019
  Transmission Date: 20230113
  Serious: Yes (Other)
  Sender: FDA-Public Use
  Company Number: CN-NOVARTISPH-NVSC2022CN234516

PATIENT
  Age: 50 Year
  Sex: Male

DRUGS (2)
  1. CYCLOSPORINE [Suspect]
     Active Substance: CYCLOSPORINE
     Indication: Transplant rejection
     Dosage: 1 DOSAGE FORM, QD (50 MG) (USED 3 TIMES)
     Route: 048
     Dates: start: 20220929, end: 20221008
  2. AMPHOTERICIN B CHOLESTERYL SULFATE [Suspect]
     Active Substance: AMPHOTERICIN B CHOLESTERYL SULFATE
     Indication: Product used for unknown indication
     Dosage: 200 MG, QD
     Route: 042
     Dates: start: 20220929, end: 20220929

REACTIONS (1)
  - Renal impairment [Recovering/Resolving]

NARRATIVE: CASE EVENT DATE: 20221004
